FAERS Safety Report 9018332 (Version 1)
Quarter: 2013Q1

REPORT INFORMATION
  Report Type: Spontaneous
  Country: US (occurrence: None)
  Receive Date: 20130111
  Receipt Date: 20130111
  Transmission Date: 20140127
  Serious: Yes (Hospitalization)
  Sender: FDA-Public Use
  Company Number: None

PATIENT
  Age: 92 Year
  Sex: Female
  Weight: 64.4 kg

DRUGS (14)
  1. OMEPRAZOLE [Concomitant]
  2. AMLODIPINE [Concomitant]
  3. PAXIL [Concomitant]
  4. AMBIEN [Concomitant]
  5. POTASSIUM [Concomitant]
  6. SENOKOT [Concomitant]
  7. LASIX [Concomitant]
  8. CA VITD [Concomitant]
  9. ALREA OPTH. [Concomitant]
  10. COUMADIN [Suspect]
     Indication: MITRAL VALVE DISEASE
     Dosage: PO
     Route: 048
  11. CORTAVITE [Concomitant]
  12. ZOFRAN [Concomitant]
  13. MAALOX [Concomitant]
  14. MIRALAX [Concomitant]

REACTIONS (7)
  - Failure to thrive [None]
  - Haemoptysis [None]
  - International normalised ratio increased [None]
  - Gastrointestinal haemorrhage [None]
  - Hypophagia [None]
  - Haemoglobin abnormal [None]
  - Haematocrit abnormal [None]
